FAERS Safety Report 5835127-0 (Version None)
Quarter: 2008Q3

REPORT INFORMATION
  Report Type: 
  Country: None (occurrence: None)
  Receive Date: 20080805
  Receipt Date: 20080805
  Transmission Date: 20090109
  Serious: Yes (Disabling)
  Sender: FDA-Public Use
  Company Number: None

PATIENT
  Age: 50 Year
  Sex: Female
  Weight: 70.7611 kg

DRUGS (1)
  1. LEVAQUIN [Suspect]
     Indication: CYSTITIS
     Dosage: 1 TABLET FOR 7 DAY PO
     Route: 048
     Dates: start: 20080729, end: 20080731

REACTIONS (7)
  - ARTHRALGIA [None]
  - MUSCULOSKELETAL PAIN [None]
  - PAIN [None]
  - PRURITUS [None]
  - RASH [None]
  - SENSORY DISTURBANCE [None]
  - URTICARIA [None]
